FAERS Safety Report 6315239-8 (Version None)
Quarter: 2009Q3

REPORT INFORMATION
  Report Type: 
  Country: None (occurrence: None)
  Receive Date: 20090819
  Receipt Date: 20090811
  Transmission Date: 20100115
  Serious: Yes (Other)
  Sender: FDA-Public Use
  Company Number: PHEH2009US09095

PATIENT
  Sex: Female

DRUGS (4)
  1. MIACALCIN [Suspect]
     Dosage: UNK
     Dates: start: 20070101
  2. CALCITONIN-SALMON [Suspect]
  3. VESICARE [Concomitant]
  4. VIVELLE-DOT [Concomitant]

REACTIONS (1)
  - DEAFNESS UNILATERAL [None]
